FAERS Safety Report 25686270 (Version 2)
Quarter: 2025Q4

REPORT INFORMATION
  Report Type: Spontaneous
  Country: None (occurrence: JP)
  Receive Date: 20250815
  Receipt Date: 20251003
  Transmission Date: 20260117
  Serious: Yes (Hospitalization, Other)
  Sender: AURINIA PHARMACEUTICALS
  Company Number: JP-MMM-Otsuka-NRVGTISB

PATIENT
  Age: 50 Year

DRUGS (2)
  1. LUPKYNIS [Suspect]
     Active Substance: VOCLOSPORIN
     Indication: Proteinuria
     Dosage: 47.4 MG, DAILY (6 CAPSULES PER DAY)
  2. CYCLOPHOSPHAMIDE [Suspect]
     Active Substance: CYCLOPHOSPHAMIDE
     Indication: Product used for unknown indication

REACTIONS (4)
  - Systemic lupus erythematosus [Unknown]
  - Diverticulitis [Recovering/Resolving]
  - Hospitalisation [Unknown]
  - Off label use [Unknown]
